FAERS Safety Report 7040343 (Version 23)
Quarter: 2020Q1

REPORT INFORMATION
  Report Type: Report from Study
  Country: CA (occurrence: CA)
  Receive Date: 20090702
  Receipt Date: 20200129
  Transmission Date: 20200409
  Serious: Yes (Other)
  Sender: FDA-Public Use
  Company Number: PHHY2009CA07431

PATIENT
  Age: 68 Year
  Sex: Male

DRUGS (1)
  1. SANDOSTATIN LAR DEPOT [Suspect]
     Active Substance: OCTREOTIDE ACETATE
     Indication: CARCINOID TUMOUR
     Dosage: 30 MG, QMO
     Route: 030
     Dates: start: 20080712

REACTIONS (17)
  - Joint stiffness [Unknown]
  - Abdominal distension [Recovering/Resolving]
  - Blood pressure diastolic decreased [Unknown]
  - Intestinal obstruction [Unknown]
  - Diarrhoea [Unknown]
  - Fatigue [Unknown]
  - Blood pressure increased [Unknown]
  - Injection site haemorrhage [Recovered/Resolved]
  - Nightmare [Unknown]
  - Injection site discomfort [Unknown]
  - Flatulence [Unknown]
  - Portal vein thrombosis [Unknown]
  - Blood pressure decreased [Unknown]
  - Abdominal pain [Recovering/Resolving]
  - Pain [Unknown]
  - Poor quality sleep [Unknown]
  - Arthralgia [Unknown]

NARRATIVE: CASE EVENT DATE: 2014
